FAERS Safety Report 16188707 (Version 1)
Quarter: 2019Q2

REPORT INFORMATION
  Report Type: Spontaneous
  Country: IT (occurrence: IT)
  Receive Date: 20190412
  Receipt Date: 20190412
  Transmission Date: 20190711
  Serious: Yes (Other)
  Sender: FDA-Public Use
  Company Number: IT-VIIV HEALTHCARE LIMITED-IT2019064852

PATIENT
  Age: 44 Year
  Sex: Female

DRUGS (1)
  1. TIVICAY [Suspect]
     Active Substance: DOLUTEGRAVIR SODIUM
     Indication: HIV INFECTION
     Dosage: 50 MG, QD
     Route: 048
     Dates: start: 20180716, end: 20190404

REACTIONS (3)
  - Depressed level of consciousness [Unknown]
  - Gait disturbance [Unknown]
  - Balance disorder [Unknown]

NARRATIVE: CASE EVENT DATE: 20190328
